FAERS Safety Report 23037690 (Version 1)
Quarter: 2023Q4

REPORT INFORMATION
  Report Type: Spontaneous
  Country: US (occurrence: None)
  Receive Date: 20231005
  Receipt Date: 20231005
  Transmission Date: 20240109
  Serious: Yes (Death)
  Sender: FDA-Public Use
  Company Number: None

PATIENT
  Age: 69 Year
  Sex: Male
  Weight: 59.4 kg

DRUGS (15)
  1. MOUNJARO [Suspect]
     Active Substance: TIRZEPATIDE
     Indication: Diabetes mellitus
     Dates: start: 20230805, end: 20230917
  2. METFORMIN [Concomitant]
     Active Substance: METFORMIN HYDROCHLORIDE
  3. jaudiance [Concomitant]
  4. ZOCOR [Concomitant]
     Active Substance: SIMVASTATIN
  5. LISINOPRIL [Concomitant]
     Active Substance: LISINOPRIL
  6. PROTONIX [Concomitant]
     Active Substance: PANTOPRAZOLE SODIUM
  7. cinnamin [Concomitant]
  8. VITAMIN B [Concomitant]
     Active Substance: VITAMIN B
  9. CALCIUM\VITAMIN D [Concomitant]
     Active Substance: CALCIUM\VITAMIN D
  10. ZINC [Concomitant]
     Active Substance: ZINC
  11. VITAMIN E [Concomitant]
     Active Substance: .ALPHA.-TOCOPHEROL
  12. VITAMIN B12 [Concomitant]
     Active Substance: CYANOCOBALAMIN
  13. FOLIC ACID [Concomitant]
     Active Substance: FOLIC ACID
  14. NIACIN [Concomitant]
     Active Substance: NIACIN
  15. llysine [Concomitant]

REACTIONS (4)
  - Sinus tachycardia [None]
  - Cardiac arrest [None]
  - Weight decreased [None]
  - Gastrointestinal disorder [None]

NARRATIVE: CASE EVENT DATE: 20230920
